FAERS Safety Report 8795507 (Version 2)
Quarter: 2013Q4

REPORT INFORMATION
  Report Type: Spontaneous
  Country: US (occurrence: US)
  Receive Date: 20120918
  Receipt Date: 20131101
  Transmission Date: 20140711
  Serious: No
  Sender: FDA-Public Use
  Company Number: US-009507513-1208USA005906

PATIENT
  Sex: Female

DRUGS (1)
  1. PROVENTIL [Suspect]
     Dosage: 1-2 PUFFS EVERY 4 TO 6 HOURS, PRN
     Dates: start: 20110408

REACTIONS (1)
  - Dyspnoea [Unknown]
